FAERS Safety Report 5806019-8 (Version None)
Quarter: 2008Q3

REPORT INFORMATION
  Report Type: 
  Country: None (occurrence: None)
  Receive Date: 20080710
  Receipt Date: 20080707
  Transmission Date: 20090109
  Serious: Yes (Other)
  Sender: FDA-Public Use
  Company Number: B0528603A

PATIENT
  Age: 25 Year

DRUGS (2)
  1. COMBIVIR [Suspect]
     Indication: ACQUIRED IMMUNODEFICIENCY SYNDROME
     Dosage: 900MG PER DAY
     Route: 048
     Dates: start: 20060517, end: 20071219
  2. VIREAD [Suspect]
     Indication: ACQUIRED IMMUNODEFICIENCY SYNDROME
     Dosage: 300MG PER DAY
     Route: 048
     Dates: start: 20060517, end: 20071219

REACTIONS (2)
  - ABORTION SPONTANEOUS [None]
  - DRUG EXPOSURE DURING PREGNANCY [None]
